FAERS Safety Report 14226325 (Version 2)
Quarter: 2018Q1

REPORT INFORMATION
  Report Type: Spontaneous
  Country: US (occurrence: US)
  Receive Date: 20171127
  Receipt Date: 20180307
  Transmission Date: 20180508
  Serious: Yes (Other)
  Sender: FDA-Public Use
  Company Number: US-BAYER-2017-221922

PATIENT
  Sex: Female
  Weight: 107.94 kg

DRUGS (10)
  1. COPAXONE [Concomitant]
     Active Substance: GLATIRAMER ACETATE
     Dosage: 1 (UNIT NOT REPORTED), QD
     Dates: start: 201111
  2. CLARITIN [Concomitant]
     Active Substance: LORATADINE
     Dosage: 1 TABLET, QD
  3. BETASERON [Suspect]
     Active Substance: INTERFERON BETA-1B
     Indication: RELAPSING-REMITTING MULTIPLE SCLEROSIS
     Dosage: UNK
     Dates: start: 201106, end: 201111
  4. BACLOFEN. [Concomitant]
     Active Substance: BACLOFEN
     Dosage: 1 TABLET WITH FOOD OR MILK, TID
  5. FISH OIL [Concomitant]
     Active Substance: FISH OIL
     Dosage: 1 DF, TID
  6. TRAMADOL HYDROCHLORIDE. [Concomitant]
     Active Substance: TRAMADOL HYDROCHLORIDE
     Dosage: 1 DF, Q4HR
  7. FLONASE [Concomitant]
     Active Substance: FLUTICASONE PROPIONATE
     Dosage: 1 SPRAY IN EACH NOSTRIL, QD
  8. NORTREL [Concomitant]
     Active Substance: ETHINYL ESTRADIOL\NORETHINDRONE
     Dosage: 1 TABLET DAILY FOR THREE WEEKS, 1 WEEK OFF
  9. OMEPRAZOLE. [Concomitant]
     Active Substance: OMEPRAZOLE
     Dosage: 1 CAPSULE, QD
  10. VITAMIN D [Concomitant]
     Active Substance: CHOLECALCIFEROL
     Dosage: 3 DF, TID

REACTIONS (2)
  - Multiple sclerosis [None]
  - Multiple sclerosis relapse [None]

NARRATIVE: CASE EVENT DATE: 2011
